FAERS Safety Report 9285240 (Version 1)
Quarter: 2013Q2

REPORT INFORMATION
  Report Type: Spontaneous
  Country: BR (occurrence: BR)
  Receive Date: 20130513
  Receipt Date: 20130513
  Transmission Date: 20140414
  Serious: Yes (Other)
  Sender: FDA-Public Use
  Company Number: PHHY2013BR046849

PATIENT
  Sex: Female

DRUGS (1)
  1. LOTENSIN [Suspect]
     Dosage: 5 MG, UNK

REACTIONS (1)
  - Cardiac disorder [Unknown]
